FAERS Safety Report 18653671 (Version 1)
Quarter: 2020Q4

REPORT INFORMATION
  Report Type: Spontaneous
  Country: US (occurrence: US)
  Receive Date: 20201222
  Receipt Date: 20201222
  Transmission Date: 20210114
  Serious: Yes (Other)
  Sender: FDA-Public Use
  Company Number: None

PATIENT
  Age: 68 Year
  Sex: Female
  Weight: 54.9 kg

DRUGS (9)
  1. DOXEPIN 10MG [Concomitant]
     Dates: start: 20201026, end: 20201201
  2. FOLIC ACID 800MCG [Concomitant]
  3. MAGNESIUM 500MG [Concomitant]
  4. SYNTHROID [Concomitant]
     Active Substance: LEVOTHYROXINE SODIUM
  5. RISEDRONATE 150MG [Concomitant]
  6. TRAZODONE [Suspect]
     Active Substance: TRAZODONE HYDROCHLORIDE
     Indication: INSOMNIA
     Route: 048
     Dates: start: 20201007, end: 20201222
  7. OLANZAPINE 2.5MG [Concomitant]
     Active Substance: OLANZAPINE
  8. OLANZAPINE 5MG [Concomitant]
     Active Substance: OLANZAPINE
  9. VITAMIN D 3000 [Concomitant]

REACTIONS (8)
  - Gait disturbance [None]
  - Product quality issue [None]
  - Nausea [None]
  - Hypobarism [None]
  - Feeling cold [None]
  - Asthenia [None]
  - Tinnitus [None]
  - Hypoaesthesia [None]

NARRATIVE: CASE EVENT DATE: 20201222
